FAERS Safety Report 4682876-6 (Version None)
Quarter: 2005Q2

REPORT INFORMATION
  Report Type: 
  Country: None (occurrence: None)
  Receive Date: 20050602
  Receipt Date: 20050125
  Transmission Date: 20051028
  Serious: No
  Sender: FDA-Public Use
  Company Number: US_0502112077

PATIENT
  Sex: Female

DRUGS (6)
  1. CYMBALTA [Suspect]
     Indication: DEPRESSION
     Dosage: 60 MG DAY
     Dates: start: 20041101, end: 20050103
  2. LAMICTAL [Concomitant]
  3. SYNTHROID [Concomitant]
  4. LORAZEPAM [Concomitant]
  5. CELEBREX [Concomitant]
  6. CONTRACEPTIVE PILL (ORAL CONTRACEPTIVE NOS) [Concomitant]

REACTIONS (6)
  - HEADACHE [None]
  - NAUSEA [None]
  - PHOTOPHOBIA [None]
  - POLLAKIURIA [None]
  - POLYDIPSIA [None]
  - VISION BLURRED [None]
